FAERS Safety Report 4664732-2 (Version None)
Quarter: 2005Q2

REPORT INFORMATION
  Report Type: 
  Country: None (occurrence: None)
  Receive Date: 20050516
  Receipt Date: 20050504
  Transmission Date: 20051028
  Serious: Yes (Disabling, Other)
  Sender: FDA-Public Use
  Company Number: HQWYE580906MAY05

PATIENT
  Age: 56 Year
  Sex: Male

DRUGS (5)
  1. VENLAFAXINE HCL [Suspect]
     Indication: DEPRESSION
     Dosage: 75 MG 1X PER 1 DAY, ORAL
     Route: 048
     Dates: start: 20030202, end: 20040201
  2. PRESTARIUM (PERINDOPRIL) [Concomitant]
  3. BISOPROLOL FUMARATE (BISOPROLOL FUMARATE0 [Concomitant]
  4. INSULIN [Concomitant]
  5. ZOCOR [Concomitant]

REACTIONS (2)
  - BLINDNESS TRANSIENT [None]
  - VISION BLURRED [None]
